FAERS Safety Report 12647178 (Version 1)
Quarter: 2016Q3

REPORT INFORMATION
  Report Type: Spontaneous
  Country: US (occurrence: None)
  Receive Date: 20160811
  Receipt Date: 20160811
  Transmission Date: 20161109
  Serious: Yes (Other)
  Sender: FDA-Public Use
  Company Number: None

PATIENT
  Age: 66 Year
  Sex: Male

DRUGS (4)
  1. PREDNISONE. [Concomitant]
     Active Substance: PREDNISONE
  2. XANAX [Concomitant]
     Active Substance: ALPRAZOLAM
  3. AUGMENTIN [Concomitant]
     Active Substance: AMOXICILLIN\CLAVULANATE POTASSIUM
  4. DULOXETINE, 60 MG LUPIN BRAND [Suspect]
     Active Substance: DULOXETINE
     Route: 048
     Dates: start: 20160113, end: 20160515

REACTIONS (2)
  - Aggression [None]
  - Hostility [None]

NARRATIVE: CASE EVENT DATE: 20160511
